FAERS Safety Report 7715608-5 (Version None)
Quarter: 2011Q3

REPORT INFORMATION
  Report Type: 
  Country: None (occurrence: None)
  Receive Date: 20110829
  Receipt Date: 20110822
  Transmission Date: 20111222
  Serious: Yes (Death)
  Sender: FDA-Public Use
  Company Number: FR-ROCHE-798224

PATIENT
  Age: 80 Year
  Sex: Male

DRUGS (8)
  1. ACTONEL [Concomitant]
     Dosage: REPORTED AS ACTONEL 35 MG, TABLET
  2. LASILIX 40 [Concomitant]
     Dosage: REPORTED AS LASILIX 40MG, TABLET
  3. MABTHERA [Suspect]
     Route: 042
     Dates: start: 20050701, end: 20110805
  4. PREDNISONE [Suspect]
     Route: 048
     Dates: start: 20090501, end: 20110809
  5. LYRICA [Concomitant]
     Dosage: REPORTED AS 300 MG, CAPSULE
  6. NEBIVOLOL HCL [Concomitant]
     Dosage: REPORTED AS NEBIVOLOL BASE
  7. CELLCEPT [Suspect]
     Route: 048
     Dates: start: 20060101, end: 20110809
  8. STABLON [Concomitant]
     Dosage: REPORTED AS STABLON 12.5 MG, TABLET

REACTIONS (2)
  - MYELODYSPLASTIC SYNDROME [None]
  - LUNG INFECTION [None]
